FAERS Safety Report 9000146 (Version 1)
Quarter: 2013Q1

REPORT INFORMATION
  Report Type: Report from Study
  Country: US (occurrence: US)
  Receive Date: 20130102
  Receipt Date: 20130102
  Transmission Date: 20140127
  Serious: No
  Sender: FDA-Public Use
  Company Number: US-VERTEX PHARMACEUTICALS INC.-2012-026805

PATIENT
  Sex: Male

DRUGS (6)
  1. VX-950 (TELAPREVIR) [Suspect]
     Indication: HEPATITIS C
     Dosage: UNK
     Route: 048
  2. RIBAVIRIN [Suspect]
     Indication: HEPATITIS C
     Dosage: 200 MG, UNK
  3. PEGASYS [Suspect]
     Indication: HEPATITIS C
  4. ZOLOFT [Concomitant]
     Dosage: 25 MG, UNK
  5. PROCRIT                            /00909301/ [Concomitant]
  6. HYDROCHLOROTHIAZIDE WITH TRIAMTERENE [Concomitant]

REACTIONS (1)
  - Blood potassium decreased [Unknown]
